FAERS Safety Report 23194466 (Version 1)
Quarter: 2023Q4

REPORT INFORMATION
  Report Type: Spontaneous
  Country: CA (occurrence: CA)
  Receive Date: 20231117
  Receipt Date: 20231117
  Transmission Date: 20240110
  Serious: Yes (Death, Other)
  Sender: FDA-Public Use
  Company Number: CA-HIKMA PHARMACEUTICALS USA INC.-CA-H14001-23-66796

PATIENT

DRUGS (1)
  1. AZACITIDINE [Suspect]
     Active Substance: AZACITIDINE
     Indication: Product used for unknown indication
     Dosage: 75 MILLIGRAM/SQ. METER, 6 EVERY 28 DAYS
     Route: 058

REACTIONS (2)
  - Death [Fatal]
  - Product use issue [Unknown]
